FAERS Safety Report 20057197 (Version 1)
Quarter: 2021Q4

REPORT INFORMATION
  Report Type: Report from Study
  Country: HK (occurrence: HK)
  Receive Date: 20211111
  Receipt Date: 20211111
  Transmission Date: 20220304
  Serious: Yes (Death, Hospitalization, Other)
  Sender: FDA-Public Use
  Company Number: HK-ASTELLAS-2021US043196

PATIENT
  Age: 74 Year
  Sex: Male

DRUGS (3)
  1. ENFORTUMAB VEDOTIN [Suspect]
     Active Substance: ENFORTUMAB VEDOTIN
     Indication: Bladder cancer stage IV
     Dosage: 1 DF, ONCE DAILY (80 MG)
     Route: 042
     Dates: start: 20210812
  2. ENFORTUMAB VEDOTIN [Suspect]
     Active Substance: ENFORTUMAB VEDOTIN
     Indication: Metastases to liver
     Dosage: 1 DF, ONCE DAILY (80 MG)
     Route: 042
     Dates: start: 20210820
  3. ENFORTUMAB VEDOTIN [Suspect]
     Active Substance: ENFORTUMAB VEDOTIN
     Indication: Metastases to abdominal cavity

REACTIONS (11)
  - Death [Fatal]
  - Drug hypersensitivity [Unknown]
  - Tremor [Unknown]
  - Heart rate increased [Unknown]
  - Platelet count decreased [Unknown]
  - Pneumonitis [Unknown]
  - Hepatic enzyme abnormal [Unknown]
  - Weight decreased [Unknown]
  - Incontinence [Unknown]
  - Off label use [Unknown]
  - Drug ineffective [Unknown]

NARRATIVE: CASE EVENT DATE: 20210801
